FAERS Safety Report 14931270 (Version 1)
Quarter: 2018Q2

REPORT INFORMATION
  Report Type: Spontaneous
  Country: US (occurrence: US)
  Receive Date: 20180524
  Receipt Date: 20180524
  Transmission Date: 20180711
  Serious: No
  Sender: FDA-Public Use
  Company Number: US-CELGENEUS-USA-20180508035

PATIENT
  Sex: Female
  Weight: 51 kg

DRUGS (6)
  1. ENASIDENIB [Suspect]
     Active Substance: ENASIDENIB
     Indication: OFF LABEL USE
     Dosage: DOSE INCREASED
     Route: 048
  2. ENASIDENIB [Suspect]
     Active Substance: ENASIDENIB
     Indication: DIFFUSE LARGE B-CELL LYMPHOMA
     Route: 048
  3. LENALIDOMIDE [Suspect]
     Active Substance: LENALIDOMIDE
     Dosage: 10 MILLIGRAM
     Route: 048
     Dates: start: 201801
  4. LENALIDOMIDE [Suspect]
     Active Substance: LENALIDOMIDE
     Indication: DIFFUSE LARGE B-CELL LYMPHOMA
     Dosage: 25 MILLIGRAM
     Route: 048
     Dates: start: 201707
  5. LENALIDOMIDE [Suspect]
     Active Substance: LENALIDOMIDE
     Indication: OFF LABEL USE
     Dosage: 15 MILLIGRAM
     Route: 048
     Dates: start: 201710
  6. LENALIDOMIDE [Suspect]
     Active Substance: LENALIDOMIDE
     Dosage: 25 MILLIGRAM
     Route: 048
     Dates: start: 201804

REACTIONS (2)
  - Abdominal pain [Unknown]
  - Frequent bowel movements [Unknown]
